FAERS Safety Report 14941929 (Version 1)
Quarter: 2018Q2

REPORT INFORMATION
  Report Type: Spontaneous
  Country: FR (occurrence: FR)
  Receive Date: 20180527
  Receipt Date: 20180527
  Transmission Date: 20180711
  Serious: Yes (Other)
  Sender: FDA-Public Use
  Company Number: FR-MERCK KGAA-2048496

PATIENT
  Sex: Female

DRUGS (1)
  1. NOVOTHYROX [Suspect]
     Active Substance: LEVOTHYROXINE SODIUM
     Indication: POST PROCEDURAL HYPOTHYROIDISM

REACTIONS (17)
  - Visual impairment [None]
  - Decreased interest [None]
  - Asthenia [None]
  - Loss of personal independence in daily activities [None]
  - Anxiety [None]
  - Headache [None]
  - Apathy [None]
  - Angina pectoris [None]
  - Fatigue [None]
  - Fear [None]
  - Crying [None]
  - Psychiatric symptom [None]
  - Palpitations [None]
  - Vertigo [None]
  - Depression [None]
  - Feeling abnormal [None]
  - Muscle spasms [None]
